FAERS Safety Report 8128015-0 (Version None)
Quarter: 2012Q1

REPORT INFORMATION
  Report Type: 
  Country: None (occurrence: None)
  Receive Date: 20120210
  Receipt Date: 20120203
  Transmission Date: 20120608
  Serious: Yes (Death)
  Sender: FDA-Public Use
  Company Number: US-ACTELION-A-US2012-60673

PATIENT

DRUGS (6)
  1. DILTIAZEM CD [Concomitant]
  2. VENTAVIS [Suspect]
     Indication: PULMONARY ARTERIAL HYPERTENSION
     Dosage: X3-9/DAY
     Route: 055
     Dates: start: 20100811
  3. NORVASC [Concomitant]
  4. LETAIRIS [Concomitant]
  5. VIAGRA [Concomitant]
  6. MORPHINE [Concomitant]

REACTIONS (3)
  - CIRCULATORY COLLAPSE [None]
  - HEADACHE [None]
  - RESPIRATORY ARREST [None]
